FAERS Safety Report 10989909 (Version 2)
Quarter: 2015Q2

REPORT INFORMATION
  Report Type: Report from Study
  Country: FR (occurrence: FR)
  Receive Date: 20150406
  Receipt Date: 20150428
  Transmission Date: 20150821
  Serious: Yes (Disabling, Other)
  Sender: FDA-Public Use
  Company Number: FR-ROCHE-1560789

PATIENT
  Age: 81 Year
  Sex: Female

DRUGS (3)
  1. RANIBIZUMAB [Suspect]
     Active Substance: RANIBIZUMAB
     Indication: RETINAL VEIN OCCLUSION
     Dosage: LAST DOSE PRIOR TO SAE ON 18/JUN/2014
     Route: 050
     Dates: start: 20140416
  2. RANIBIZUMAB [Suspect]
     Active Substance: RANIBIZUMAB
     Route: 050
     Dates: start: 20140516
  3. RANIBIZUMAB [Suspect]
     Active Substance: RANIBIZUMAB
     Route: 050
     Dates: start: 20140618

REACTIONS (7)
  - Retinal ischaemia [Not Recovered/Not Resolved]
  - Pain [Unknown]
  - Blindness [Unknown]
  - Vitreous haemorrhage [Recovered/Resolved]
  - Glaucoma [Unknown]
  - Intraocular pressure increased [Not Recovered/Not Resolved]
  - Alveolitis allergic [Unknown]

NARRATIVE: CASE EVENT DATE: 20141023
